FAERS Safety Report 6962637-5 (Version None)
Quarter: 2010Q3

REPORT INFORMATION
  Report Type: 
  Country: None (occurrence: None)
  Receive Date: 20100902
  Receipt Date: 20100823
  Transmission Date: 20110219
  Serious: Yes (Other)
  Sender: FDA-Public Use
  Company Number: US-PFIZER INC-2010106724

PATIENT
  Sex: Female
  Weight: 68.027 kg

DRUGS (1)
  1. ESTROPIPATE [Suspect]
     Indication: HORMONE REPLACEMENT THERAPY
     Dosage: 0.625 MG, 1X/DAY, FIVE DAYS/WEEK
     Route: 048

REACTIONS (1)
  - HYPERSENSITIVITY [None]
